FAERS Safety Report 4876567-6 (Version None)
Quarter: 2005Q4

REPORT INFORMATION
  Report Type: 
  Country: None (occurrence: None)
  Receive Date: 20051206
  Receipt Date: 20050823
  Transmission Date: 20060501
  Serious: No
  Sender: FDA-Public Use
  Company Number: USA0506101683

PATIENT
  Sex: Male
  Weight: 106 kg

DRUGS (8)
  1. CYMBALTA [Suspect]
     Indication: DEPRESSION
     Dosage: 60 MG
  2. GLUCOPHAGE [Concomitant]
  3. AVANDIA [Concomitant]
  4. LIPITOR [Concomitant]
  5. ANDROGEL [Concomitant]
  6. OXYCONTIN [Concomitant]
  7. ALTACE [Concomitant]
  8. NOVOLOG [Concomitant]

REACTIONS (1)
  - ABNORMAL DREAMS [None]
